FAERS Safety Report 6407671-9 (Version None)
Quarter: 2009Q4

REPORT INFORMATION
  Report Type: 
  Country: None (occurrence: None)
  Receive Date: 20091020
  Receipt Date: 20091006
  Transmission Date: 20100525
  Serious: Yes (Hospitalization)
  Sender: FDA-Public Use
  Company Number: NO-MYLANLABS-2009S1017465

PATIENT
  Age: 16 Day

DRUGS (1)
  1. LAMOTRIGINE [Suspect]
     Indication: DRUG EXPOSURE VIA BREAST MILK
     Route: 063

REACTIONS (4)
  - ANTICONVULSANT DRUG LEVEL INCREASED [None]
  - CYANOSIS NEONATAL [None]
  - DRUG EXPOSURE VIA BREAST MILK [None]
  - MATERNAL DRUGS AFFECTING FOETUS [None]
